FAERS Safety Report 6109006-8 (Version None)
Quarter: 2009Q1

REPORT INFORMATION
  Report Type: 
  Country: None (occurrence: None)
  Receive Date: 20090310
  Receipt Date: 20090224
  Transmission Date: 20090719
  Serious: Yes (Hospitalization)
  Sender: FDA-Public Use
  Company Number: US-ELI_LILLY_AND_COMPANY-US200812006234

PATIENT
  Sex: Female

DRUGS (16)
  1. FORTEO [Suspect]
     Indication: OSTEOPOROSIS
     Dosage: 20 UG, DAILY (1/D)
     Dates: start: 20081001, end: 20081231
  2. ATENOLOL [Concomitant]
  3. SYNTHROID [Concomitant]
  4. ZOLOFT [Concomitant]
  5. PREVACID [Concomitant]
  6. SIMVASTATIN [Concomitant]
  7. CAL-MAG [Concomitant]
  8. MULTI-VITAMIN [Concomitant]
     Dosage: ONE
  9. VITAMIN E [Concomitant]
  10. VITAMIN D [Concomitant]
     Dosage: 1000 UNK, UNK
  11. ASCORBIC ACID [Concomitant]
  12. VITAMIN B6 [Concomitant]
     Dosage: 100 UNK, UNK
  13. PANTOTHENIC ACID [Concomitant]
     Dosage: 250 UNK, UNK
  14. GLUCOSAMINE W/CHONDROITIN [Concomitant]
     Dosage: ONE DAILY (1/D)
  15. FISH OIL [Concomitant]
     Dosage: ONE DAILY (1/D)
  16. PANGESTYME [Concomitant]
     Dosage: TWO PER MEAL

REACTIONS (4)
  - DYSPNOEA [None]
  - FEELING ABNORMAL [None]
  - MUSCLE SPASMS [None]
  - SPEECH DISORDER [None]
